FAERS Safety Report 6508849-6 (Version None)
Quarter: 2009Q4

REPORT INFORMATION
  Report Type: 
  Country: None (occurrence: None)
  Receive Date: 20091221
  Receipt Date: 20090811
  Transmission Date: 20100525
  Serious: No
  Sender: FDA-Public Use
  Company Number: US-ASTRAZENECA-2009SE07614

PATIENT
  Age: 74 Year
  Sex: Female
  Weight: 102.1 kg

DRUGS (6)
  1. CRESTOR [Suspect]
     Route: 048
  2. CRESTOR [Suspect]
     Route: 048
  3. VITAMIN D [Concomitant]
  4. MULTI-VITAMINS [Concomitant]
  5. NOVA SCOTIA SUSHI [Concomitant]
     Indication: ALOPECIA
  6. EXTRA STRENGTH TYLENOL [Concomitant]

REACTIONS (3)
  - BONE PAIN [None]
  - MUSCLE SPASMS [None]
  - MYALGIA [None]
